FAERS Safety Report 24997329 (Version 2)
Quarter: 2025Q3

REPORT INFORMATION
  Report Type: Report from Study
  Country: JP (occurrence: JP)
  Receive Date: 20250222
  Receipt Date: 20250802
  Transmission Date: 20251021
  Serious: Yes (Other)
  Sender: ALEXION PHARMACEUTICALS
  Company Number: JP-ASTRAZENECA-250013989_064320_P_1

PATIENT
  Age: 59 Year
  Sex: Female
  Weight: 51 kg

DRUGS (16)
  1. ANDEXANET ALFA [Suspect]
     Active Substance: ANDEXANET ALFA
     Indication: Thrombosis
     Dates: start: 20220830, end: 20220830
  2. ANDEXANET ALFA [Suspect]
     Active Substance: ANDEXANET ALFA
     Indication: Intestinal haemorrhage
  3. RIVAROXABAN [Concomitant]
     Active Substance: RIVAROXABAN
     Indication: Embolism venous
     Route: 065
  4. RIVAROXABAN [Concomitant]
     Active Substance: RIVAROXABAN
     Route: 065
  5. HEPARIN CALCIUM [Concomitant]
     Active Substance: HEPARIN CALCIUM
     Dates: start: 20220907, end: 20220921
  6. ROCURONIUM BROMIDE [Concomitant]
     Active Substance: ROCURONIUM BROMIDE
     Indication: Hypotonia
     Route: 065
     Dates: start: 20220829, end: 20220830
  7. OMEPRAZOLE [Concomitant]
     Active Substance: OMEPRAZOLE
     Indication: Prophylaxis
     Route: 065
     Dates: start: 20220829
  8. MENATETRENONE [Concomitant]
     Active Substance: MENATETRENONE
     Indication: Cerebral haemorrhage
     Route: 065
     Dates: start: 20220829, end: 20220829
  9. SOLU-CORTEF [Concomitant]
     Active Substance: HYDROCORTISONE SODIUM SUCCINATE
     Indication: Blood corticotrophin abnormal
     Route: 065
     Dates: start: 20220829, end: 20220905
  10. NOREPINEPHRINE BITARTRATE [Concomitant]
     Active Substance: NOREPINEPHRINE BITARTRATE
     Indication: Blood pressure decreased
     Route: 065
  11. MIDAZOLAM [Concomitant]
     Active Substance: MIDAZOLAM
     Indication: Sedation
     Route: 065
  12. MEYLON [Concomitant]
     Active Substance: SODIUM BICARBONATE
     Indication: Acidosis
  13. FENTANYL [Concomitant]
     Active Substance: FENTANYL
     Indication: Analgesic therapy
     Route: 065
  14. KETALAR [Concomitant]
     Active Substance: KETAMINE HYDROCHLORIDE
     Indication: Sedation
     Route: 065
     Dates: start: 20220829
  15. KETALAR [Concomitant]
     Active Substance: KETAMINE HYDROCHLORIDE
     Route: 065
     Dates: start: 20220829, end: 20220906
  16. CYANOCOBALAMIN\PYRIDOXINE HYDROCHLORIDE\THIAMINE [Concomitant]
     Active Substance: CYANOCOBALAMIN\PYRIDOXINE HYDROCHLORIDE\THIAMINE
     Indication: Hypovitaminosis
     Dates: start: 20220829, end: 20220901

REACTIONS (1)
  - Splenic infarction [Recovered/Resolved with Sequelae]

NARRATIVE: CASE EVENT DATE: 20220903
